FAERS Safety Report 6556504-9 (Version None)
Quarter: 2010Q1

REPORT INFORMATION
  Report Type: 
  Country: None (occurrence: None)
  Receive Date: 20100128
  Receipt Date: 20100122
  Transmission Date: 20100710
  Serious: Yes (Death, Hospitalization)
  Sender: FDA-Public Use
  Company Number: IN-ELI_LILLY_AND_COMPANY-IN201001005011

PATIENT
  Age: 45 Year
  Sex: Male

DRUGS (5)
  1. ALIMTA [Suspect]
     Indication: LUNG ADENOCARCINOMA
     Dosage: 700 MG, UNKNOWN
     Dates: start: 20091219
  2. CARBOPLATIN [Concomitant]
     Indication: LUNG ADENOCARCINOMA
     Dosage: UNK, UNKNOWN
  3. FOLIC ACID [Concomitant]
     Dosage: UNK, UNKNOWN
  4. VITAMIN B-12 [Concomitant]
     Dosage: UNK, UNKNOWN
  5. DEXAMETHASONE [Concomitant]
     Dosage: UNK, UNKNOWN

REACTIONS (2)
  - DEATH [None]
  - NEUTROPENIA [None]
